FAERS Safety Report 21715667 (Version 1)
Quarter: 2022Q4

REPORT INFORMATION
  Report Type: Spontaneous
  Country: US (occurrence: None)
  Receive Date: 20221210
  Receipt Date: 20221210
  Transmission Date: 20230112
  Serious: Yes (Hospitalization)
  Sender: FDA-Public Use
  Company Number: None

PATIENT
  Sex: Female
  Weight: 60.75 kg

DRUGS (1)
  1. EFFEXOR [Suspect]
     Active Substance: VENLAFAXINE HYDROCHLORIDE
     Indication: Depression
     Dosage: FREQUENCY : DAILY;?
     Route: 048
     Dates: start: 20140101

REACTIONS (13)
  - Paraesthesia [None]
  - Pain [None]
  - Peripheral swelling [None]
  - Anxiety [None]
  - Conversion disorder [None]
  - Rhabdomyolysis [None]
  - Loss of personal independence in daily activities [None]
  - Dizziness [None]
  - Panic disorder [None]
  - Dizziness [None]
  - Dyspnoea [None]
  - Vision blurred [None]
  - Electric shock sensation [None]
